FAERS Safety Report 6076285-5 (Version None)
Quarter: 2009Q1

REPORT INFORMATION
  Report Type: 
  Country: None (occurrence: None)
  Receive Date: 20090209
  Receipt Date: 20090204
  Transmission Date: 20090719
  Serious: Yes (Hospitalization)
  Sender: FDA-Public Use
  Company Number: 2008SP021967

PATIENT
  Age: 39 Year
  Sex: Male
  Weight: 64 kg

DRUGS (6)
  1. TEMODAL [Suspect]
     Indication: GLIOBLASTOMA MULTIFORME
     Dosage: 140 MG; QD; PO, 280 MG; ; PO, 260 MG; ; PO
     Route: 048
     Dates: start: 20070903, end: 20071015
  2. TEMODAL [Suspect]
     Indication: GLIOBLASTOMA MULTIFORME
     Dosage: 140 MG; QD; PO, 280 MG; ; PO, 260 MG; ; PO
     Route: 048
     Dates: start: 20071112
  3. TEMODAL [Suspect]
     Indication: GLIOBLASTOMA MULTIFORME
     Dosage: 140 MG; QD; PO, 280 MG; ; PO, 260 MG; ; PO
     Route: 048
     Dates: start: 20081121
  4. DEPAKENE [Concomitant]
  5. KYTRIL [Concomitant]
  6. BAKTAR [Concomitant]

REACTIONS (2)
  - DIVERTICULITIS [None]
  - GASTRIC CANCER [None]
